FAERS Safety Report 7533367-6 (Version None)
Quarter: 2011Q2

REPORT INFORMATION
  Report Type: 
  Country: None (occurrence: None)
  Receive Date: 20110608
  Receipt Date: 20110120
  Transmission Date: 20111010
  Serious: Yes (Hospitalization, Other)
  Sender: FDA-Public Use
  Company Number: US-BAYER-201034247NA

PATIENT
  Sex: Female
  Weight: 86.168 kg

DRUGS (12)
  1. BISACODYL [Concomitant]
  2. URECHOLINE [Concomitant]
  3. BACTRIN [Concomitant]
  4. COLACE [Concomitant]
  5. BETHANECHOL [Concomitant]
  6. PROZAC [Concomitant]
  7. COUMADIN [Concomitant]
  8. YASMIN [Suspect]
     Indication: ORAL CONTRACEPTION
     Dosage: UNK
     Route: 048
     Dates: start: 20030101
  9. MULTI-VITAMIN [Concomitant]
  10. YAZ [Suspect]
     Indication: ORAL CONTRACEPTION
     Dosage: UNK
     Route: 048
     Dates: start: 20030101
  11. ALBUTEROL SULFATE AUTOHALER [Concomitant]
  12. PREVACID [Concomitant]

REACTIONS (4)
  - PAIN [None]
  - MYOCARDIAL INFARCTION [None]
  - PULMONARY EMBOLISM [None]
  - INJURY [None]
